FAERS Safety Report 10176921 (Version 1)
Quarter: 2014Q2

REPORT INFORMATION
  Report Type: Spontaneous
  Country: DE (occurrence: DE)
  Receive Date: 20140516
  Receipt Date: 20140516
  Transmission Date: 20141212
  Serious: Yes (Other)
  Sender: FDA-Public Use
  Company Number: DE-ABBVIE-14P-062-1237631-00

PATIENT
  Age: 38 Year
  Sex: Female

DRUGS (3)
  1. HUMIRA [Suspect]
     Indication: CROHN^S DISEASE
     Dosage: UNKNOWN FREQUENCY
     Route: 058
  2. PREDNISOLONE [Suspect]
     Indication: CROHN^S DISEASE
     Route: 048
     Dates: end: 20130601
  3. LEVOTHYROXINE [Suspect]
     Indication: HYPOTHYROIDISM
     Route: 048
     Dates: end: 20130601

REACTIONS (1)
  - Abortion missed [Unknown]
